FAERS Safety Report 11305784 (Version 2)
Quarter: 2015Q3

REPORT INFORMATION
  Report Type: Report from Study
  Country: US (occurrence: US)
  Receive Date: 20150723
  Receipt Date: 20150922
  Transmission Date: 20151125
  Serious: Yes (Hospitalization)
  Sender: FDA-Public Use
  Company Number: US-ACTELION-A-US2015-121429

PATIENT
  Age: 54 Year
  Sex: Female

DRUGS (1)
  1. MACITENTAN [Suspect]
     Active Substance: MACITENTAN
     Indication: PULMONARY ARTERIAL HYPERTENSION
     Dosage: 10 MG, QD
     Route: 048
     Dates: start: 20150518

REACTIONS (5)
  - Dyspnoea [Unknown]
  - Abdominal distension [Unknown]
  - No therapeutic response [Unknown]
  - Pain in extremity [Unknown]
  - Dizziness [Unknown]
